FAERS Safety Report 21134975 (Version 1)
Quarter: 2022Q3

REPORT INFORMATION
  Report Type: Spontaneous
  Country: FR (occurrence: FR)
  Receive Date: 20220727
  Receipt Date: 20220727
  Transmission Date: 20221027
  Serious: Yes (Hospitalization, Other)
  Sender: FDA-Public Use
  Company Number: FR-MLMSERVICE-20220707-3664326-1

PATIENT
  Age: 25 Year
  Sex: Female

DRUGS (3)
  1. PAROXETINE [Suspect]
     Active Substance: PAROXETINE
     Indication: Product used for unknown indication
     Route: 065
     Dates: start: 202011
  2. TRAMADOL [Concomitant]
     Active Substance: TRAMADOL
     Indication: Suicidal ideation
     Route: 065
     Dates: start: 2020
  3. TRAMADOL [Concomitant]
     Active Substance: TRAMADOL
     Indication: Somatic symptom disorder

REACTIONS (1)
  - Toxicity to various agents [Unknown]

NARRATIVE: CASE EVENT DATE: 20201101
